FAERS Safety Report 4923903-8 (Version None)
Quarter: 2006Q1

REPORT INFORMATION
  Report Type: 
  Country: None (occurrence: None)
  Receive Date: 20060227
  Receipt Date: 20050923
  Transmission Date: 20060701
  Serious: Yes (Death)
  Sender: FDA-Public Use
  Company Number: US-MERCK-0509USA03942

PATIENT
  Age: 40 Year
  Sex: Male
  Weight: 98 kg

DRUGS (2)
  1. VIOXX [Suspect]
     Indication: PAIN
     Route: 048
     Dates: start: 20020124, end: 20030928
  2. VIOXX [Suspect]
     Indication: MYOSITIS
     Route: 048
     Dates: start: 20020124, end: 20030928

REACTIONS (6)
  - ARTERIOSCLEROSIS CORONARY ARTERY [None]
  - CARDIAC ARREST [None]
  - HOT FLUSH [None]
  - HYPERCHOLESTEROLAEMIA [None]
  - LYMPH NODE PAIN [None]
  - LYMPHADENOPATHY [None]
